FAERS Safety Report 7874879-5 (Version None)
Quarter: 2011Q4

REPORT INFORMATION
  Report Type: 
  Country: None (occurrence: None)
  Receive Date: 20111031
  Receipt Date: 20111020
  Transmission Date: 20120403
  Serious: Yes (Death, Other)
  Sender: FDA-Public Use
  Company Number: US-BAYER-200940618NA

PATIENT
  Age: 59 Year
  Sex: Female
  Weight: 65 kg

DRUGS (42)
  1. LASIX [Concomitant]
     Dosage: 40 MG, QD
     Route: 048
  2. LEVOTHYROXINE SODIUM [Concomitant]
     Dosage: 112 MCG/24HR, QD
     Route: 048
  3. CAPTOPRIL [Concomitant]
     Dosage: 12.5 MG, TID
     Route: 048
  4. LOPRESSOR [Concomitant]
     Dosage: 50 MG, TID
     Route: 048
  5. VASOTEC [Concomitant]
     Route: 042
  6. INTEGRILIN [Concomitant]
     Dosage: UNK
     Route: 042
     Dates: start: 20010101
  7. PLATELETS [Concomitant]
     Dosage: 6 PACK
     Route: 042
     Dates: start: 20010227
  8. INSULIN HUMULIN [Concomitant]
     Dosage: 35 U, BID
     Route: 058
  9. ENALAPRIL [Concomitant]
     Dosage: 5 MG, QD
     Route: 048
  10. SPIRONOLACTONE [Concomitant]
     Dosage: 25 MG, QD
     Route: 048
  11. TYLENOL W/ CODEINE [Concomitant]
     Indication: PAIN
     Dosage: 1 TAB EVERY 4-6 HOURS AS NEEDED
     Route: 048
  12. PRINIVIL [Concomitant]
     Dosage: 60 MG, QD
     Route: 048
  13. MEPERIDINE HCL [Concomitant]
     Dosage: AS NEEDED
     Route: 042
  14. FENTANYL-100 [Concomitant]
     Route: 042
  15. ZAROXOLYN [Concomitant]
  16. LOVENOX [Concomitant]
     Route: 058
  17. PROTAMINE SULFATE [Concomitant]
     Route: 042
  18. VANCOMYCIN [Concomitant]
     Dosage: 1 GRAM
     Route: 042
  19. INSULIN [Concomitant]
     Route: 042
  20. ANCEF [Concomitant]
     Dosage: 1 G, TID
     Route: 042
     Dates: start: 20010206
  21. TRASYLOL [Suspect]
     Indication: INTRA-AORTIC BALLOON PLACEMENT
  22. HEPARIN [Concomitant]
     Dosage: 2000 UNITS
     Route: 013
     Dates: start: 20010106
  23. COUMADIN [Concomitant]
  24. CLINDAMYCIN [Concomitant]
     Dosage: 600 MG, TID
     Route: 048
     Dates: start: 20010128
  25. RED BLOOD CELLS [Concomitant]
     Dosage: 4 UNITS
     Route: 042
     Dates: start: 20010227
  26. FRESH FROZEN PLASMA [Concomitant]
     Dosage: 4 U, ONCE
     Route: 042
     Dates: start: 20010227
  27. VERSED [Concomitant]
     Route: 042
  28. DIPRIVAN [Concomitant]
     Route: 042
  29. THROMBIN LOCAL SOLUTION [Concomitant]
     Dosage: 5,000 UNITS
     Route: 042
  30. TRASYLOL [Suspect]
     Indication: CORONARY ARTERY BYPASS
     Dosage: UNK
     Route: 042
     Dates: start: 20010201
  31. SYNTHROID [Concomitant]
     Route: 048
  32. NITROGLYCERIN [Concomitant]
     Indication: CHEST PAIN
     Dosage: .24MG AS NEEDED
     Route: 060
  33. HEPARIN [Concomitant]
     Route: 042
  34. NORVASC [Concomitant]
     Dosage: 10 MG, QD
     Route: 048
  35. MORPHINE [Concomitant]
     Dosage: AS NEEDED
     Route: 042
  36. ACETYLSALICYLIC ACID SRT [Concomitant]
     Dosage: 325 MG, QD
     Route: 048
  37. DIGOXIN [Concomitant]
     Dosage: 25 MG, QD
     Route: 048
  38. LANOXIN [Concomitant]
     Dosage: 0.125 MG, QD
     Route: 048
  39. LOPRESSOR [Concomitant]
     Dosage: 12.5 MG, BID
     Route: 048
  40. NITROGLYCERIN [Concomitant]
     Dosage: 250 MCG
     Route: 022
     Dates: start: 20010106
  41. CIPROFLOXACIN [Concomitant]
     Dosage: 750 MG, BID
     Route: 048
     Dates: start: 20010204
  42. SOLU-MEDROL [Concomitant]
     Dosage: UNK
     Route: 042
     Dates: start: 20010128

REACTIONS (14)
  - STRESS [None]
  - RENAL IMPAIRMENT [None]
  - RENAL INJURY [None]
  - FEAR [None]
  - DEPRESSION [None]
  - RENAL FAILURE [None]
  - INJURY [None]
  - UNEVALUABLE EVENT [None]
  - ANHEDONIA [None]
  - ANXIETY [None]
  - DEATH [None]
  - EMOTIONAL DISTRESS [None]
  - MULTI-ORGAN FAILURE [None]
  - PAIN [None]
